FAERS Safety Report 17154270 (Version 1)
Quarter: 2019Q4

REPORT INFORMATION
  Report Type: Spontaneous
  Country: CN (occurrence: CN)
  Receive Date: 20191213
  Receipt Date: 20191213
  Transmission Date: 20200122
  Serious: Yes (Hospitalization)
  Sender: FDA-Public Use
  Company Number: CN-BAUSCH-BL-2019-063848

PATIENT
  Age: 54 Year
  Sex: Female

DRUGS (3)
  1. DEXAMETHASONE;TOBRAMYCIN [Suspect]
     Active Substance: DEXAMETHASONE\TOBRAMYCIN
     Indication: POSTOPERATIVE CARE
     Dosage: AT 07:42, EVERY NIGHT, RIGHT EYE
     Route: 047
     Dates: start: 20191026, end: 20191119
  2. PRANOPROFEN [Suspect]
     Active Substance: PRANOPROFEN
     Indication: POSTOPERATIVE CARE
     Dosage: AT 07:42, RIGHT EYE
     Route: 047
     Dates: start: 20191026, end: 20191119
  3. TIMOLOL MALEATE EYE DROPS [Suspect]
     Active Substance: TIMOLOL MALEATE
     Indication: INTRAOCULAR PRESSURE INCREASED
     Dosage: AT 10:43, RIGHT EYE
     Route: 047
     Dates: start: 20191030, end: 20191119

REACTIONS (3)
  - Trichiasis [Recovering/Resolving]
  - Entropion [Recovering/Resolving]
  - Keratitis [Recovering/Resolving]

NARRATIVE: CASE EVENT DATE: 20191119
